FAERS Safety Report 13738903 (Version 1)
Quarter: 2017Q3

REPORT INFORMATION
  Report Type: Spontaneous
  Country: US (occurrence: US)
  Receive Date: 20170710
  Receipt Date: 20170710
  Transmission Date: 20171127
  Serious: Yes (Other)
  Sender: FDA-Public Use
  Company Number: US-SAOL THERAPEUTICS-2017SAO00334

PATIENT
  Sex: Male

DRUGS (2)
  1. BACLOFEN. [Suspect]
     Active Substance: BACLOFEN
     Indication: MUSCLE SPASTICITY
     Dosage: UNK UNKNOWN, UNK
     Route: 048
  2. LIORESAL [Suspect]
     Active Substance: BACLOFEN
     Dosage: 236.9 ?G, \DAY

REACTIONS (3)
  - Drug withdrawal syndrome [Not Recovered/Not Resolved]
  - Fall [Unknown]
  - Device failure [Unknown]

NARRATIVE: CASE EVENT DATE: 2016
